FAERS Safety Report 10438613 (Version 4)
Quarter: 2015Q1

REPORT INFORMATION
  Report Type: Spontaneous
  Country: JP (occurrence: JP)
  Receive Date: 20140908
  Receipt Date: 20150330
  Transmission Date: 20150720
  Serious: Yes (Other)
  Sender: FDA-Public Use
  Company Number: JP-BAYER-2014-133921

PATIENT
  Age: 42 Year
  Sex: Female
  Weight: 49 kg

DRUGS (7)
  1. MAGNEVIST [Suspect]
     Active Substance: GADOPENTETATE DIMEGLUMINE
     Indication: NUCLEAR MAGNETIC RESONANCE IMAGING
     Dosage: 10 ML (0.2 ML/ KG BODY WEIGHT), ONCE (74TH SESSION);
     Route: 042
     Dates: start: 20140801, end: 20140801
  2. MAGNEVIST [Suspect]
     Active Substance: GADOPENTETATE DIMEGLUMINE
     Indication: NUCLEAR MAGNETIC RESONANCE IMAGING
     Dosage: 0.2 ML/KG BODY WEIGHT; TOTAL 49 (OF 75) SESSIONS WERE DONE WITH MAGNEVIST
     Route: 042
     Dates: start: 19961107, end: 20060314
  3. ALEVIATIN [Suspect]
     Active Substance: PHENYTOIN SODIUM
     Dosage: UNK
     Route: 048
     Dates: start: 2004, end: 20090330
  4. MAGNEVIST [Suspect]
     Active Substance: GADOPENTETATE DIMEGLUMINE
     Indication: NUCLEAR MAGNETIC RESONANCE IMAGING
     Dosage: 0.2 ML/KG BODY WEIGHT, UNK
     Route: 042
     Dates: start: 20100427, end: 20140624
  5. OMNISCAN [Suspect]
     Active Substance: GADODIAMIDE
     Indication: NUCLEAR MAGNETIC RESONANCE IMAGING
     Dosage: 0.2 ML/KG, UNK
     Route: 042
     Dates: start: 20060606, end: 20091124
  6. EXCEGRAN [Suspect]
     Active Substance: ZONISAMIDE
     Dosage: UNK
     Route: 048
     Dates: start: 20080805
  7. LAMICTAL [Concomitant]
     Active Substance: LAMOTRIGINE
     Dosage: UNK
     Route: 048
     Dates: start: 20090120

REACTIONS (7)
  - Cerebellar atrophy [Not Recovered/Not Resolved]
  - Aspartate aminotransferase increased [Recovering/Resolving]
  - Haemorrhagic ovarian cyst [Recovered/Resolved]
  - Dyslalia [None]
  - Gait disturbance [None]
  - Fall [Not Recovered/Not Resolved]
  - Arthralgia [None]

NARRATIVE: CASE EVENT DATE: 2003
